FAERS Safety Report 5090534-1 (Version None)
Quarter: 2006Q3

REPORT INFORMATION
  Report Type: 
  Country: None (occurrence: None)
  Receive Date: 20060828
  Receipt Date: 20060530
  Transmission Date: 20061208
  Serious: No
  Sender: FDA-Public Use
  Company Number: US-GLAXOSMITHKLINE-A0607238A

PATIENT
  Age: 60 Year
  Sex: Male

DRUGS (4)
  1. WELLBUTRIN XL [Suspect]
     Indication: DEPRESSION
     Dosage: 300MG PER DAY
     Route: 048
  2. DIURETIC [Concomitant]
  3. ANTIHYPERTENSIVE [Concomitant]
  4. DIABETES MEDICATION [Concomitant]

REACTIONS (3)
  - CLAUSTROPHOBIA [None]
  - PARANOIA [None]
  - TREMOR [None]
